FAERS Safety Report 9095080 (Version 1)
Quarter: 2013Q1

REPORT INFORMATION
  Report Type: Spontaneous
  Country: US (occurrence: None)
  Receive Date: 20130123
  Receipt Date: 20130123
  Transmission Date: 20140127
  Serious: Yes (Death)
  Sender: FDA-Public Use
  Company Number: 2013-00478

PATIENT
  Age: 29 Year
  Sex: Male

DRUGS (1)
  1. LIDOCAINE HYDROCHLORIDE [Suspect]
     Indication: PRODUCT USED FOR UNKNOWN INDICATION
     Route: 048
     Dates: end: 2011

REACTIONS (15)
  - Hypoxic-ischaemic encephalopathy [None]
  - Brain oedema [None]
  - Pulmonary congestion [None]
  - Pulmonary oedema [None]
  - Myocardial infarction [None]
  - Rhabdomyolysis [None]
  - Accidental death [None]
  - Tremor [None]
  - Syncope [None]
  - Convulsion [None]
  - Blood pH decreased [None]
  - Blood glucose increased [None]
  - Coma [None]
  - Unresponsive to stimuli [None]
  - Platelet count increased [None]
